FAERS Safety Report 26199375 (Version 1)
Quarter: 2025Q4

REPORT INFORMATION
  Report Type: Spontaneous
  Country: US (occurrence: US)
  Receive Date: 20251225
  Receipt Date: 20251225
  Transmission Date: 20260118
  Serious: No
  Sender: ABBVIE
  Company Number: US-ABBVIE-6606871

PATIENT
  Age: 10 Year
  Sex: Female

DRUGS (1)
  1. LUPRON DEPOT-PED [Suspect]
     Active Substance: LEUPROLIDE ACETATE
     Indication: Precocious puberty
     Route: 065

REACTIONS (5)
  - Injection site erythema [Recovered/Resolved]
  - Injection site reaction [Recovered/Resolved]
  - Injection site warmth [Recovered/Resolved]
  - Injection site pain [Recovered/Resolved]
  - Injection site swelling [Recovered/Resolved]

NARRATIVE: CASE EVENT DATE: 20251201
